FAERS Safety Report 22273457 (Version 1)
Quarter: 2023Q2

REPORT INFORMATION
  Report Type: Spontaneous
  Country: US (occurrence: US)
  Receive Date: 20230502
  Receipt Date: 20230502
  Transmission Date: 20230722
  Serious: Yes (Hospitalization, Other)
  Sender: FDA-Public Use
  Company Number: US-GLAXOSMITHKLINE-US2023060691

PATIENT

DRUGS (1)
  1. BENLYSTA [Suspect]
     Active Substance: BELIMUMAB
     Indication: Product used for unknown indication
     Dosage: 1 DF, WE (1 SHOT )

REACTIONS (11)
  - COVID-19 [Unknown]
  - Systemic lupus erythematosus [Unknown]
  - Pain [Unknown]
  - Fall [Unknown]
  - Joint injury [Unknown]
  - Limb injury [Unknown]
  - Arthropod bite [Unknown]
  - Peripheral swelling [Unknown]
  - Hypersensitivity [Unknown]
  - Gait inability [Not Recovered/Not Resolved]
  - Product dose omission issue [Unknown]

NARRATIVE: CASE EVENT DATE: 20230101
